FAERS Safety Report 8481298-X (Version None)
Quarter: 2012Q3

REPORT INFORMATION
  Report Type: 
  Country: None (occurrence: None)
  Receive Date: 20120702
  Receipt Date: 20120622
  Transmission Date: 20120928
  Serious: Yes (Other)
  Sender: FDA-Public Use
  Company Number: CA-NOVOPROD-354463

PATIENT
  Age: 66 Year
  Sex: Male
  Weight: 72 kg

DRUGS (3)
  1. VICTOZA [Suspect]
     Indication: DIABETES MELLITUS
     Dosage: 1.2 MG, QD
     Route: 058
     Dates: start: 20120601
  2. METFORMIN HCL [Concomitant]
     Indication: DIABETES MELLITUS
  3. DIABETA [Concomitant]
     Indication: DIABETES MELLITUS

REACTIONS (5)
  - VOMITING [None]
  - DECREASED APPETITE [None]
  - RECTAL HAEMORRHAGE [None]
  - DIARRHOEA [None]
  - NAUSEA [None]
